FAERS Safety Report 5469348-6 (Version None)
Quarter: 2007Q3

REPORT INFORMATION
  Report Type: 
  Country: None (occurrence: None)
  Receive Date: 20070927
  Receipt Date: 20070918
  Transmission Date: 20080115
  Serious: Yes (Other)
  Sender: FDA-Public Use
  Company Number: IT-JNJFOC-20070904304

PATIENT
  Age: 57 Year
  Sex: Male

DRUGS (1)
  1. RISPERDAL [Suspect]
     Indication: BIPOLAR DISORDER

REACTIONS (1)
  - ISCHAEMIA [None]
